FAERS Safety Report 25715760 (Version 2)
Quarter: 2025Q3

REPORT INFORMATION
  Report Type: Spontaneous
  Country: CA (occurrence: CA)
  Receive Date: 20250822
  Receipt Date: 20250902
  Transmission Date: 20251020
  Serious: Yes (Other)
  Sender: SANOFI AVENTIS
  Company Number: CA-SANOFI-01487172

PATIENT
  Sex: Female

DRUGS (1)
  1. APIDRA SOLOSTAR [Suspect]
     Active Substance: INSULIN GLULISINE

REACTIONS (1)
  - Diabetes mellitus inadequate control [Recovered/Resolved]
